FAERS Safety Report 9789878 (Version 1)
Quarter: 2013Q4

REPORT INFORMATION
  Report Type: Spontaneous
  Country: AU (occurrence: AU)
  Receive Date: 20131231
  Receipt Date: 20131231
  Transmission Date: 20140711
  Serious: Yes (Other)
  Sender: FDA-Public Use
  Company Number: AU-ROCHE-1324213

PATIENT
  Age: 47 Year
  Sex: Female

DRUGS (3)
  1. HERCEPTIN [Suspect]
     Indication: HER-2 POSITIVE BREAST CANCER
     Dosage: 6 CYCLES WITH TAXOL
     Route: 065
  2. TAXOL [Suspect]
     Indication: HER-2 POSITIVE BREAST CANCER
     Dosage: 6 CYCLES WITH HERCEPTIN
     Route: 065
  3. CYCLOPHOSPHAMIDE [Concomitant]

REACTIONS (2)
  - Metastases to chest wall [Unknown]
  - Metastases to lung [Unknown]
